FAERS Safety Report 19409940 (Version 2)
Quarter: 2021Q3

REPORT INFORMATION
  Report Type: Report from Study
  Country: US (occurrence: US)
  Receive Date: 20210614
  Receipt Date: 20210706
  Transmission Date: 20211014
  Serious: No
  Sender: FDA-Public Use
  Company Number: US-GILEAD-2021-0533984

PATIENT
  Age: 20 Year
  Sex: Male

DRUGS (19)
  1. GABAPENTIN. [Concomitant]
     Active Substance: GABAPENTIN
  2. SEVELAMER [Concomitant]
     Active Substance: SEVELAMER
  3. AZTREONAM LYSINE [Suspect]
     Active Substance: AZTREONAM LYSINE
     Indication: BACTERIAL DISEASE CARRIER
  4. AZATHIOPRINE. [Concomitant]
     Active Substance: AZATHIOPRINE
  5. FERROUS SULFATE. [Concomitant]
     Active Substance: FERROUS SULFATE
  6. GLUCAGON. [Concomitant]
     Active Substance: GLUCAGON
  7. ATORVASTATIN [Concomitant]
     Active Substance: ATORVASTATIN
  8. KETOCONAZOLE. [Concomitant]
     Active Substance: KETOCONAZOLE
  9. EPOGEN [Concomitant]
     Active Substance: ERYTHROPOIETIN
  10. MIDODRINE [Concomitant]
     Active Substance: MIDODRINE
  11. AZTREONAM LYSINE [Suspect]
     Active Substance: AZTREONAM LYSINE
     Indication: BRONCHIECTASIS
     Dosage: 75 MG, TID
     Route: 055
     Dates: start: 20210702
  12. ANEFRIN [Concomitant]
  13. FAMOTIDINE. [Concomitant]
     Active Substance: FAMOTIDINE
  14. HUMALOG [Concomitant]
     Active Substance: INSULIN LISPRO
  15. AZTREONAM LYSINE [Suspect]
     Active Substance: AZTREONAM LYSINE
     Indication: STREPTOCOCCAL INFECTION
     Dosage: UNK
     Route: 065
  16. ALBUTEROL [SALBUTAMOL] [Concomitant]
     Active Substance: ALBUTEROL
  17. ELIQUIS [Concomitant]
     Active Substance: APIXABAN
  18. SODIUM CHLORIDE. [Concomitant]
     Active Substance: SODIUM CHLORIDE
  19. TOUJEO [Concomitant]
     Active Substance: INSULIN GLARGINE

REACTIONS (1)
  - Off label use [Unknown]
